FAERS Safety Report 12664152 (Version 1)
Quarter: 2016Q3

REPORT INFORMATION
  Report Type: Spontaneous
  Country: US (occurrence: US)
  Receive Date: 20160818
  Receipt Date: 20160818
  Transmission Date: 20161109
  Serious: No
  Sender: FDA-Public Use
  Company Number: US-GLAXOSMITHKLINE-US2016118289

PATIENT
  Age: 59 Year
  Sex: Female

DRUGS (1)
  1. TRANSDERM SCOP [Suspect]
     Active Substance: SCOPOLAMINE
     Indication: MOTION SICKNESS
     Dosage: UNK,2 PATCHES
     Dates: start: 20160723, end: 20160801

REACTIONS (2)
  - Product quality issue [Unknown]
  - Incorrect drug administration duration [Unknown]
